FAERS Safety Report 25027101 (Version 1)
Quarter: 2025Q1

REPORT INFORMATION
  Report Type: Spontaneous
  Country: US (occurrence: US)
  Receive Date: 20250301
  Receipt Date: 20250301
  Transmission Date: 20250409
  Serious: No
  Sender: SANOFI AVENTIS
  Company Number: US-SA-2025SA057473

PATIENT
  Sex: Male

DRUGS (16)
  1. DUPIXENT [Suspect]
     Active Substance: DUPILUMAB
     Indication: Neurodermatitis
     Dosage: 300 MG, QOW
     Route: 058
  2. ASPIRIN [Concomitant]
     Active Substance: ASPIRIN
  3. BRIMONIDINE [Concomitant]
     Active Substance: BRIMONIDINE TARTRATE
  4. BUSPIRONE HCL [Concomitant]
     Active Substance: BUSPIRONE HYDROCHLORIDE
  5. CLOBETASOL PROPIONATE [Concomitant]
     Active Substance: CLOBETASOL PROPIONATE
  6. INCRUSE ELLIPTA [Concomitant]
     Active Substance: UMECLIDINIUM BROMIDE
  7. IPRATROPIUM [Concomitant]
     Active Substance: IPRATROPIUM
  8. LATANOPROST [Concomitant]
     Active Substance: LATANOPROST
  9. LEVOTHYROXINE [Concomitant]
     Active Substance: LEVOTHYROXINE
  10. MONTELUKAST [Concomitant]
     Active Substance: MONTELUKAST
  11. OMEPRAZOLE [Concomitant]
     Active Substance: OMEPRAZOLE
  12. SIMVASTATIN [Concomitant]
     Active Substance: SIMVASTATIN
  13. SPIRIVA [Concomitant]
     Active Substance: TIOTROPIUM BROMIDE MONOHYDRATE
  14. TACROLIMUS [Concomitant]
     Active Substance: TACROLIMUS
  15. TERAZOSIN HYDROCHLORIDE [Concomitant]
     Active Substance: TERAZOSIN HYDROCHLORIDE
  16. WIXELA INHUB [Concomitant]
     Active Substance: FLUTICASONE PROPIONATE\SALMETEROL XINAFOATE

REACTIONS (2)
  - Eye pruritus [Unknown]
  - Condition aggravated [Unknown]
